FAERS Safety Report 10336876 (Version 1)
Quarter: 2014Q3

REPORT INFORMATION
  Report Type: Spontaneous
  Country: GB (occurrence: GB)
  Receive Date: 20140723
  Receipt Date: 20140723
  Transmission Date: 20150326
  Serious: Yes (Other)
  Sender: FDA-Public Use
  Company Number: PHHY2014GB087619

PATIENT
  Age: 72 Year
  Sex: Female
  Weight: 78.19 kg

DRUGS (18)
  1. FLUTIFORM [Concomitant]
     Active Substance: FLUTICASONE PROPIONATE\FORMOTEROL FUMARATE
     Dates: start: 20140322, end: 20140616
  2. LANSOPRAZOLE. [Concomitant]
     Active Substance: LANSOPRAZOLE
     Dates: start: 20140322, end: 20140616
  3. ACIDEX [Concomitant]
     Dates: start: 20140322, end: 20140616
  4. DERMOL [Concomitant]
     Active Substance: BENZALKONIUM CHLORIDE\CHLORHEXIDINE HYDROCHLORIDE\ISOPROPYL MYRISTATE\PARAFFIN
     Dates: start: 20140322, end: 20140508
  5. RIZATRIPTAN [Concomitant]
     Active Substance: RIZATRIPTAN
     Dates: start: 20140322, end: 20140616
  6. SALBUTAMOL [Concomitant]
     Active Substance: ALBUTEROL
     Dates: start: 20140322, end: 20140616
  7. FLUTICASONE FUROATE [Concomitant]
     Active Substance: FLUTICASONE FUROATE
     Dates: start: 20140322, end: 20140616
  8. DOXYCYCLINE. [Suspect]
     Active Substance: DOXYCYCLINE
     Dates: start: 20140704
  9. NATECAL D3 [Concomitant]
     Active Substance: CALCIUM CARBONATE\CHOLECALCIFEROL
     Dates: start: 20140322, end: 20140510
  10. CLARITHROMYCIN. [Concomitant]
     Active Substance: CLARITHROMYCIN
     Dates: start: 20140430, end: 20140507
  11. DIPROBASE [Concomitant]
     Active Substance: CHLOROCRESOL
     Dates: start: 20140410, end: 20140617
  12. GLYCERYL TRINITRATE [Concomitant]
     Active Substance: NITROGLYCERIN
     Dates: start: 20140410, end: 20140616
  13. PREDNISOLONE. [Concomitant]
     Active Substance: PREDNISOLONE
     Dates: start: 20140430, end: 20140507
  14. ESTRADIOL. [Concomitant]
     Active Substance: ESTRADIOL
     Dates: start: 20140410, end: 20140616
  15. FEXOFENADINE [Concomitant]
     Active Substance: FEXOFENADINE\FEXOFENADINE HYDROCHLORIDE
     Dates: start: 20140322, end: 20140616
  16. ROSUVASTATIN [Concomitant]
     Active Substance: ROSUVASTATIN
     Dates: start: 20140322, end: 20140616
  17. ADIPINE//NIFEDIPINE [Concomitant]
     Dates: start: 20140519, end: 20140616
  18. ASPIRIN. [Concomitant]
     Active Substance: ASPIRIN
     Dates: start: 20140410, end: 20140508

REACTIONS (1)
  - Malaise [Recovering/Resolving]

NARRATIVE: CASE EVENT DATE: 20140704
